FAERS Safety Report 23889219 (Version 1)
Quarter: 2024Q2

REPORT INFORMATION
  Report Type: Spontaneous
  Country: FR (occurrence: FR)
  Receive Date: 20240523
  Receipt Date: 20240523
  Transmission Date: 20240716
  Serious: Yes (Life-Threatening)
  Sender: FDA-Public Use
  Company Number: FR-002147023-PHHY2019FR065970

PATIENT
  Age: 48 Year
  Sex: Male
  Weight: 75.4 kg

DRUGS (2)
  1. TERBINAFINE [Suspect]
     Active Substance: TERBINAFINE
     Indication: Fungal skin infection
     Dosage: 250 MG, UNK
     Route: 048
  2. FUSIDATE SODIUM [Suspect]
     Active Substance: FUSIDATE SODIUM
     Indication: Fungal skin infection
     Dosage: 1000 MG, QD
     Route: 048
     Dates: start: 20190204, end: 20190215

REACTIONS (1)
  - Pancytopenia [Recovering/Resolving]

NARRATIVE: CASE EVENT DATE: 20190215
